FAERS Safety Report 15319118 (Version 1)
Quarter: 2018Q3

REPORT INFORMATION
  Report Type: Report from Study
  Country: US (occurrence: US)
  Receive Date: 20180826
  Receipt Date: 20180826
  Transmission Date: 20181010
  Serious: Yes (Hospitalization)
  Sender: FDA-Public Use
  Company Number: US-ACTELION-A-NJ2017-157948

PATIENT
  Age: 72 Year
  Sex: Male
  Weight: 129.25 kg

DRUGS (5)
  1. OPSUMIT [Suspect]
     Active Substance: MACITENTAN
     Indication: PULMONARY ARTERIAL HYPERTENSION
     Dosage: 10 MG, QD
     Route: 048
  2. REVATIO [Concomitant]
     Active Substance: SILDENAFIL CITRATE
  3. OXYGEN. [Concomitant]
     Active Substance: OXYGEN
  4. REMODULIN [Concomitant]
     Active Substance: TREPROSTINIL
  5. AMLODIPINE [Concomitant]
     Active Substance: AMLODIPINE BESYLATE

REACTIONS (8)
  - Chest pain [Unknown]
  - Confusional state [Unknown]
  - Dyspnoea exertional [Unknown]
  - Hospitalisation [Recovered/Resolved]
  - Dyspnoea [Unknown]
  - Peripheral swelling [Unknown]
  - Malaise [Unknown]
  - Visual impairment [Unknown]
